FAERS Safety Report 24395663 (Version 1)
Quarter: 2024Q4

REPORT INFORMATION
  Report Type: Report from Study
  Country: US (occurrence: US)
  Receive Date: 20241004
  Receipt Date: 20241004
  Transmission Date: 20250115
  Serious: Yes (Death, Other)
  Sender: GILEAD
  Company Number: US-GILEAD-2024-0688968

PATIENT
  Age: 58 Year
  Sex: Male

DRUGS (2)
  1. SOFOSBUVIR\VELPATASVIR [Suspect]
     Active Substance: SOFOSBUVIR\VELPATASVIR
     Indication: Hepatitis C
     Dosage: 400MG/100MG TABLET TAKEN DAILY
     Route: 048
     Dates: start: 20240906
  2. SOFOSBUVIR\VELPATASVIR [Suspect]
     Active Substance: SOFOSBUVIR\VELPATASVIR
     Dosage: 400MG/100MG TAKE 1 TABLET ONCE DAILY FOR 12 WEEKS
     Route: 048
     Dates: start: 20240909

REACTIONS (1)
  - Death [Fatal]

NARRATIVE: CASE EVENT DATE: 20241003
